FAERS Safety Report 13318155 (Version 1)
Quarter: 2017Q1

REPORT INFORMATION
  Report Type: Spontaneous
  Country: US (occurrence: US)
  Receive Date: 20170309
  Receipt Date: 20170309
  Transmission Date: 20170428
  Serious: Yes (Other)
  Sender: FDA-Public Use
  Company Number: None

PATIENT
  Age: 84 Year
  Sex: Male

DRUGS (3)
  1. IDELALISIB [Suspect]
     Active Substance: IDELALISIB
     Indication: LYMPHOMA
     Route: 048
     Dates: start: 20161109, end: 20170227
  2. ALLOPURINOL. [Concomitant]
     Active Substance: ALLOPURINOL
  3. METOPROLOL. [Concomitant]
     Active Substance: METOPROLOL

REACTIONS (1)
  - Hepatitis B [None]

NARRATIVE: CASE EVENT DATE: 20170227
